FAERS Safety Report 6591427-0 (Version None)
Quarter: 2010Q1

REPORT INFORMATION
  Report Type: 
  Country: None (occurrence: None)
  Receive Date: 20100219
  Receipt Date: 20100215
  Transmission Date: 20100710
  Serious: Yes (Hospitalization)
  Sender: FDA-Public Use
  Company Number: DE-NAPPMUNDI-DEU-2010-0005881

PATIENT
  Sex: Female

DRUGS (9)
  1. HYDROMORPHONE HCL [Suspect]
     Indication: PAIN
     Dosage: 24 MG, DAILY
     Route: 048
     Dates: start: 20100120
  2. HYDROMORPHONE HCL [Suspect]
     Indication: CONSTIPATION
  3. METO SUCC [Concomitant]
  4. CYMBALTA [Concomitant]
  5. ISDN [Concomitant]
  6. LEVOTHYROXINE SODIUM [Concomitant]
  7. INEGY [Concomitant]
  8. OMEP [Concomitant]
  9. MIGRAENERTON [Concomitant]

REACTIONS (1)
  - BRONCHITIS [None]
